FAERS Safety Report 9729402 (Version 1)
Quarter: 2013Q4

REPORT INFORMATION
  Report Type: Spontaneous
  Country: US (occurrence: US)
  Receive Date: 20131204
  Receipt Date: 20131204
  Transmission Date: 20140711
  Serious: Yes (Other)
  Sender: FDA-Public Use
  Company Number: PHHY2013US136527

PATIENT
  Age: 43 Year
  Sex: Male

DRUGS (5)
  1. DOXORUBICIN [Suspect]
     Indication: HODGKIN^S DISEASE
  2. VINBLASTINE [Suspect]
     Indication: HODGKIN^S DISEASE
  3. BLEOMYCIN [Suspect]
     Indication: HODGKIN^S DISEASE
  4. OXYCODONE+PARACETAMOL [Suspect]
  5. DACARBAZINE [Suspect]
     Indication: HODGKIN^S DISEASE

REACTIONS (6)
  - Clostridium difficile infection [Unknown]
  - Abdominal distension [Recovering/Resolving]
  - Abdominal tenderness [Recovering/Resolving]
  - Abdominal pain [Unknown]
  - Constipation [Unknown]
  - Bowel movement irregularity [Unknown]
